FAERS Safety Report 6678165-0 (Version None)
Quarter: 2010Q2

REPORT INFORMATION
  Report Type: 
  Country: None (occurrence: None)
  Receive Date: 20100409
  Receipt Date: 20100409
  Transmission Date: 20101027
  Serious: No
  Sender: FDA-Public Use
  Company Number: None

PATIENT
  Age: 60 Year
  Sex: Male
  Weight: 78.4723 kg

DRUGS (1)
  1. DORZOLAMIDE HYDROCHLORIDE AND TIMOLOL MALEATE [Suspect]
     Indication: GLAUCOMA
     Dosage: 1 GTT BID OPHTHALMIC
     Route: 047
     Dates: start: 20100103, end: 20100408

REACTIONS (4)
  - INTRAOCULAR PRESSURE TEST ABNORMAL [None]
  - PHOTOPHOBIA [None]
  - PRODUCT SUBSTITUTION ISSUE [None]
  - VISION BLURRED [None]
